FAERS Safety Report 8547128-2 (Version None)
Quarter: 2012Q3

REPORT INFORMATION
  Report Type: 
  Country: None (occurrence: None)
  Receive Date: 20120727
  Receipt Date: 20120216
  Transmission Date: 20120928
  Serious: No
  Sender: FDA-Public Use
  Company Number: US-ASTRAZENECA-2012SE11409

PATIENT
  Age: 47 Year
  Sex: Female

DRUGS (7)
  1. AMBIEN [Concomitant]
  2. VITAMIN D [Concomitant]
  3. SEROQUEL XR [Suspect]
     Route: 048
  4. DEPAKOTE [Concomitant]
  5. KLONOPIN [Concomitant]
  6. ZOLOFT [Concomitant]
  7. SEROQUEL XR [Suspect]
     Indication: BIPOLAR DISORDER
     Route: 048

REACTIONS (3)
  - SOMNOLENCE [None]
  - DRUG DOSE OMISSION [None]
  - PANIC ATTACK [None]
